FAERS Safety Report 12732375 (Version 1)
Quarter: 2016Q3

REPORT INFORMATION
  Report Type: Spontaneous
  Country: US (occurrence: US)
  Receive Date: 20160912
  Receipt Date: 20160912
  Transmission Date: 20161109
  Serious: No
  Sender: FDA-Public Use
  Company Number: None

PATIENT
  Age: 68 Year
  Sex: Female
  Weight: 97.52 kg

DRUGS (25)
  1. CEREFOLIN NAC CAPLET (6MG/2MG/600MG) PAMLAB [Suspect]
     Active Substance: ACETYLCYSTEINE\LEVOMEFOLATE CALCIUM\METHYLCOBALAMIN
     Indication: ARTERIOSCLEROSIS
     Dosage: 6MG/2MG/600MG 90 CAPLETS 1 PER DAY (AM) BY MOUTH
     Route: 048
     Dates: start: 20060101
  2. HCTZ [Concomitant]
     Active Substance: HYDROCHLOROTHIAZIDE
  3. SINGULAIR [Concomitant]
     Active Substance: MONTELUKAST SODIUM
  4. SYNTHROID [Concomitant]
     Active Substance: LEVOTHYROXINE SODIUM
  5. FOLIC ACID. [Concomitant]
     Active Substance: FOLIC ACID
  6. VITAMIN D [Concomitant]
     Active Substance: CHOLECALCIFEROL
  7. OPDIVO [Concomitant]
     Active Substance: NIVOLUMAB
  8. ASPIRIN. [Concomitant]
     Active Substance: ASPIRIN
  9. CALCIUM [Concomitant]
     Active Substance: CALCIUM
  10. LYRICA [Concomitant]
     Active Substance: PREGABALIN
  11. VITAMIN B12 [Concomitant]
     Active Substance: CYANOCOBALAMIN
  12. GLUCOSAMINE [Concomitant]
     Active Substance: GLUCOSAMINE
  13. MUCINEX [Concomitant]
     Active Substance: GUAIFENESIN
  14. BYSTOLIC [Concomitant]
     Active Substance: NEBIVOLOL HYDROCHLORIDE
  15. DULERA [Concomitant]
     Active Substance: FORMOTEROL FUMARATE DIHYDRATE\MOMETASONE FUROATE
  16. ALLEGRA [Concomitant]
     Active Substance: FEXOFENADINE HYDROCHLORIDE
  17. KRILL OIL [Concomitant]
     Active Substance: DIETARY SUPPLEMENT
  18. CEREFOLIN NAC CAPLET (6MG/2MG/600MG) PAMLAB [Suspect]
     Active Substance: ACETYLCYSTEINE\LEVOMEFOLATE CALCIUM\METHYLCOBALAMIN
     Indication: BLOOD HOMOCYSTEINE INCREASED
     Dosage: 6MG/2MG/600MG 90 CAPLETS 1 PER DAY (AM) BY MOUTH
     Route: 048
     Dates: start: 20060101
  19. PRILOSEC [Concomitant]
     Active Substance: OMEPRAZOLE MAGNESIUM
  20. ULTRAM [Concomitant]
     Active Substance: TRAMADOL HYDROCHLORIDE
  21. ONE A DAY MULTIVITAMIN [Concomitant]
  22. CEREFOLIN [Concomitant]
     Active Substance: CYANOCOBALAMIN CO-57\LEVOMEFOLATE CALCIUM\PYRIDOXINE HYDROCHLORIDE\RIBOFLAVIN
  23. RHINECORT AQ [Concomitant]
  24. ALBUTEROL. [Concomitant]
     Active Substance: ALBUTEROL
  25. SPECTRAVITE [Concomitant]

REACTIONS (2)
  - Product odour abnormal [None]
  - Product solubility abnormal [None]

NARRATIVE: CASE EVENT DATE: 20160101
